FAERS Safety Report 25552699 (Version 1)
Quarter: 2025Q3

REPORT INFORMATION
  Report Type: Spontaneous
  Country: CH (occurrence: CH)
  Receive Date: 20250715
  Receipt Date: 20250715
  Transmission Date: 20251020
  Serious: Yes (Hospitalization)
  Sender: TEVA
  Company Number: None

PATIENT
  Age: 94 Year
  Sex: Male
  Weight: 67 kg

DRUGS (12)
  1. ESCITALOPRAM [Suspect]
     Active Substance: ESCITALOPRAM OXALATE
     Indication: Product used for unknown indication
     Route: 048
     Dates: end: 20250411
  2. ESCITALOPRAM [Suspect]
     Active Substance: ESCITALOPRAM OXALATE
     Indication: Product used for unknown indication
     Dosage: ESCITALOPRAM MEPHA
     Route: 048
     Dates: start: 20250412
  3. Metamucil N orange [Concomitant]
     Indication: Product used for unknown indication
     Route: 048
  4. HALCION [Suspect]
     Active Substance: TRIAZOLAM
     Indication: Sleep disorder
     Route: 048
     Dates: end: 20250410
  5. SERETIDE [Concomitant]
     Active Substance: FLUTICASONE PROPIONATE\SALMETEROL XINAFOATE
     Indication: Asthma
     Dosage: 50 MCG/250 MCG 1-0-1-0 AS NEEDED, RESPIRATORY (INHALATION)
     Route: 065
  6. Prostaplant f [Concomitant]
     Indication: Benign prostatic hyperplasia
     Dosage: 1-0-0
     Route: 048
     Dates: end: 20250410
  7. ATORVASTATIN CALCIUM [Concomitant]
     Active Substance: ATORVASTATIN CALCIUM
     Indication: Coronary artery disease
     Dosage: 0-0-1-0
     Route: 048
  8. SILODOSIN [Suspect]
     Active Substance: SILODOSIN
     Indication: Benign prostatic hyperplasia
     Dosage: 1-0-0-0
     Route: 048
     Dates: end: 20250410
  9. AMLODIPINE BESYLATE [Suspect]
     Active Substance: AMLODIPINE BESYLATE
     Indication: Hypertension
     Dosage: 0-0-1-0
     Route: 048
     Dates: end: 20250410
  10. ELIQUIS [Concomitant]
     Active Substance: APIXABAN
     Indication: Atrial fibrillation
     Dosage: 1-0-1-0
     Route: 048
  11. CANDESARTAN [Suspect]
     Active Substance: CANDESARTAN
     Indication: Hypertension
     Dosage: 1-0-0-0
     Route: 048
     Dates: end: 20250410
  12. NEBIVOLOL [Suspect]
     Active Substance: NEBIVOLOL
     Indication: Hypertension
     Dosage: 1-0-1-0, AXAPHARM
     Route: 048
     Dates: end: 20250411

REACTIONS (2)
  - Fall [Recovering/Resolving]
  - Orthostatic hypotension [Recovering/Resolving]

NARRATIVE: CASE EVENT DATE: 20250410
